FAERS Safety Report 8375931-0 (Version None)
Quarter: 2012Q2

REPORT INFORMATION
  Report Type: 
  Country: None (occurrence: None)
  Receive Date: 20120522
  Receipt Date: 20120517
  Transmission Date: 20120825
  Serious: Yes (Hospitalization)
  Sender: FDA-Public Use
  Company Number: IR-BAYER-2012-049628

PATIENT
  Age: 46 Year
  Sex: Male

DRUGS (1)
  1. CIPROFLOXACIN [Suspect]
     Indication: PROSTATITIS
     Dosage: 500 MG, BID
     Route: 048

REACTIONS (7)
  - ODYNOPHAGIA [None]
  - SENSATION OF FOREIGN BODY [None]
  - DYSPEPSIA [None]
  - DYSPHAGIA [None]
  - OESOPHAGITIS [None]
  - CHEST PAIN [None]
  - OESOPHAGEAL ULCER [None]
